FAERS Safety Report 5413158-2 (Version None)
Quarter: 2007Q3

REPORT INFORMATION
  Report Type: 
  Country: None (occurrence: None)
  Receive Date: 20070810
  Receipt Date: 20070730
  Transmission Date: 20080115
  Serious: Yes (Hospitalization)
  Sender: FDA-Public Use
  Company Number: 2007-02579

PATIENT
  Age: 48 Year
  Sex: Male
  Weight: 91.7 kg

DRUGS (1)
  1. VELCADE [Suspect]
     Indication: MALIGNANT MELANOMA
     Dosage: 1.3 MG/M2, IV BOLUS
     Route: 040
     Dates: start: 20070619, end: 20070720

REACTIONS (5)
  - ATRIAL FIBRILLATION [None]
  - FALL [None]
  - HEAD INJURY [None]
  - HYPOTENSION [None]
  - SYNCOPE [None]
